FAERS Safety Report 5287747-2 (Version None)
Quarter: 2007Q1

REPORT INFORMATION
  Report Type: 
  Country: None (occurrence: None)
  Receive Date: 20070116
  Receipt Date: 20060916
  Transmission Date: 20070707
  Serious: No
  Sender: FDA-Public Use
  Company Number: 2006SP003309

PATIENT
  Age: 88 Year
  Sex: Female
  Weight: 58.0604 kg

DRUGS (12)
  1. LUNESTA [Suspect]
     Indication: INSOMNIA
     Dosage: 2 MG; HS; ORAL
     Route: 048
     Dates: start: 20050401
  2. GLUCOSAMINE W/ [Concomitant]
  3. CHONDROITIN [Concomitant]
  4. ACIPHEX [Concomitant]
  5. TOLTERODINE [Concomitant]
  6. CALCIUM [Concomitant]
  7. VITAMIN D [Concomitant]
  8. ESTER-C PLUS [Concomitant]
  9. SPIRONOLACTONE [Concomitant]
  10. VITAMIN B6 [Concomitant]
  11. WARFARIN SODIUM [Concomitant]
  12. TYLENOL [Concomitant]

REACTIONS (1)
  - INSOMNIA [None]
